FAERS Safety Report 6438884-8 (Version None)
Quarter: 2009Q4

REPORT INFORMATION
  Report Type: 
  Country: None (occurrence: None)
  Receive Date: 20091113
  Receipt Date: 20091030
  Transmission Date: 20100525
  Serious: Yes (Hospitalization)
  Sender: FDA-Public Use
  Company Number: PHHY2009JP48360

PATIENT
  Sex: Male

DRUGS (5)
  1. MIKELAN LA 2% (NVO) [Suspect]
     Indication: NORMAL TENSION GLAUCOMA
     Dosage: 1 GTT OU, QD
     Route: 047
     Dates: start: 20080123
  2. MIKELAN LA 2% (NVO) [Suspect]
     Dosage: 1 GTT OU, QD
     Route: 047
     Dates: end: 20091023
  3. XALATAN [Concomitant]
     Indication: NORMAL TENSION GLAUCOMA
     Dosage: 1 GTT OU/DAY
     Dates: start: 20010810, end: 20091023
  4. SODIUM HYALURONATE [Concomitant]
     Dosage: UNK
     Dates: start: 20080530, end: 20080915
  5. AZOPT [Concomitant]
     Dosage: UNK
     Dates: start: 20081229, end: 20091023

REACTIONS (1)
  - ATRIAL FIBRILLATION [None]
